FAERS Safety Report 9961114 (Version 1)
Quarter: 2014Q1

REPORT INFORMATION
  Report Type: Spontaneous
  Country: US (occurrence: US)
  Receive Date: 20140305
  Receipt Date: 20140305
  Transmission Date: 20141002
  Serious: No
  Sender: FDA-Public Use
  Company Number: US-SA-2014SA025658

PATIENT
  Age: 17 Year
  Sex: Female

DRUGS (1)
  1. ARAVA [Suspect]
     Indication: JUVENILE IDIOPATHIC ARTHRITIS
     Dosage: DOSE:1 UNIT(S)
     Route: 065
     Dates: start: 201311, end: 201311

REACTIONS (1)
  - Maternal exposure before pregnancy [Unknown]
